FAERS Safety Report 9406306 (Version 1)
Quarter: 2013Q3

REPORT INFORMATION
  Report Type: Spontaneous
  Country: US (occurrence: US)
  Receive Date: 20130717
  Receipt Date: 20130717
  Transmission Date: 20140515
  Serious: No
  Sender: FDA-Public Use
  Company Number: US-009507513-1307USA005374

PATIENT
  Age: 42 Year
  Sex: Female

DRUGS (1)
  1. IMPLANON [Suspect]
     Indication: CONTRACEPTION
     Dosage: 68 MG
     Route: 059
     Dates: start: 20100519

REACTIONS (2)
  - Device dislocation [Unknown]
  - No adverse event [Unknown]
